FAERS Safety Report 9168276 (Version 3)
Quarter: 2014Q2

REPORT INFORMATION
  Report Type: Spontaneous
  Country: US (occurrence: US)
  Receive Date: 20130318
  Receipt Date: 20140515
  Transmission Date: 20141212
  Serious: Yes (Hospitalization)
  Sender: FDA-Public Use
  Company Number: US-B.I. PHARMACEUTICALS,INC./RIDGEFIELD-2013-BI-06887BP

PATIENT
  Age: 77 Year
  Sex: Female
  Weight: 72.57 kg

DRUGS (10)
  1. PRADAXA [Suspect]
     Indication: CEREBROVASCULAR ACCIDENT PROPHYLAXIS
     Dosage: 300 MG
     Route: 048
     Dates: start: 20111022, end: 201201
  2. NORCO [Concomitant]
     Route: 048
  3. AMIODARONE [Concomitant]
     Dosage: 400 MG
     Route: 048
  4. ALBUTEROL [Concomitant]
     Dosage: 4 PUF
     Route: 055
  5. ALBUTEROL [Concomitant]
     Dosage: 10 MG
     Route: 065
  6. PROTONIX [Concomitant]
     Dosage: 40 MG
     Route: 048
  7. LIDODERM PATCH [Concomitant]
     Route: 061
  8. QUESTRAN [Concomitant]
     Route: 048
  9. LOMOTIL [Concomitant]
     Route: 048
  10. COREG [Concomitant]
     Dosage: 6.25 MG
     Route: 048

REACTIONS (2)
  - Cerebrovascular accident [Unknown]
  - Deep vein thrombosis [Unknown]
